FAERS Safety Report 21479679 (Version 1)
Quarter: 2022Q4

REPORT INFORMATION
  Report Type: Spontaneous
  Country: CO (occurrence: CO)
  Receive Date: 20221019
  Receipt Date: 20221019
  Transmission Date: 20230113
  Serious: Yes (Other)
  Sender: FDA-Public Use
  Company Number: CO-AMGEN-COLSP2022175643-SR-01

PATIENT
  Age: 51 Year
  Sex: Female
  Weight: 44 kg

DRUGS (6)
  1. MVASI [Suspect]
     Active Substance: BEVACIZUMAB-AWWB
     Indication: Adenocarcinoma of colon
     Dosage: 220 MILLIGRAM, QD
     Route: 040
     Dates: start: 20220922
  2. PEGFILGRASTIM [Suspect]
     Active Substance: PEGFILGRASTIM
     Indication: Adenocarcinoma of colon
     Dosage: 6 MG EVERY 24 HOUR(S) FOR I DAY(S).
     Route: 058
     Dates: start: 20220922
  3. LEUCOVORIN CALCIUM [Concomitant]
     Active Substance: LEUCOVORIN CALCIUM
     Indication: Adenocarcinoma of colon
     Dosage: 552 MILLIGRAM, QD
     Route: 040
     Dates: start: 20220922
  4. FLUOROURACIL [Concomitant]
     Active Substance: FLUOROURACIL
     Indication: Adenocarcinoma of colon
     Dosage: 552 MILLIGRAM, QD
     Route: 040
     Dates: start: 20220922
  5. FOSAPREPITANT [Concomitant]
     Active Substance: FOSAPREPITANT
     Indication: Adenocarcinoma of colon
     Dosage: 150 MILLIGRAM, QD
     Route: 040
     Dates: start: 20220922
  6. PALONOSETRON [Concomitant]
     Active Substance: PALONOSETRON
     Indication: Adenocarcinoma of colon
     Dosage: 0.25 MILLIGRAM, QD
     Route: 040
     Dates: start: 20220922

REACTIONS (1)
  - Neuropathy peripheral [Not Recovered/Not Resolved]

NARRATIVE: CASE EVENT DATE: 20220929
